FAERS Safety Report 6941987-2 (Version None)
Quarter: 2010Q3

REPORT INFORMATION
  Report Type: 
  Country: None (occurrence: None)
  Receive Date: 20100826
  Receipt Date: 20100816
  Transmission Date: 20110219
  Serious: Yes (Hospitalization)
  Sender: FDA-Public Use
  Company Number: PHHO2010DE12738

PATIENT
  Sex: Male
  Weight: 78 kg

DRUGS (1)
  1. CGS 20267 T30748+ [Suspect]
     Dosage: 2.5 MG
     Route: 048

REACTIONS (1)
  - ATAXIA [None]
